FAERS Safety Report 17821654 (Version 1)
Quarter: 2020Q2

REPORT INFORMATION
  Report Type: Spontaneous
  Country: US (occurrence: US)
  Receive Date: 20200525
  Receipt Date: 20200525
  Transmission Date: 20200714
  Serious: No
  Sender: FDA-Public Use
  Company Number: US-BEH-2020117637

PATIENT
  Age: 75 Year
  Sex: Female

DRUGS (1)
  1. PRIVIGEN [Suspect]
     Active Substance: HUMAN IMMUNOGLOBULIN G
     Indication: IMMUNODEFICIENCY COMMON VARIABLE
     Dosage: 20 GRAM, QMT, EVERY 4 WEEKS FOR 3 MONTHS
     Route: 042
     Dates: start: 20200331

REACTIONS (1)
  - Fatigue [Not Recovered/Not Resolved]
